FAERS Safety Report 8231548-X (Version None)
Quarter: 2012Q1

REPORT INFORMATION
  Report Type: 
  Country: None (occurrence: None)
  Receive Date: 20120323
  Receipt Date: 20120321
  Transmission Date: 20120608
  Serious: Yes (Other)
  Sender: FDA-Public Use
  Company Number: PHHY2012AU021564

PATIENT
  Sex: Female

DRUGS (3)
  1. SANDOSTATIN LAR [Suspect]
     Indication: ACROMEGALY
     Dosage: 10 MG, UNK
     Route: 030
     Dates: start: 20120209
  2. SANDOSTATIN LAR [Suspect]
     Dosage: 10 MG, UNK
     Route: 030
     Dates: start: 20120212
  3. VITAMIN D [Concomitant]
     Indication: OSTEOPENIA
     Route: 048

REACTIONS (7)
  - HAEMATOMA [None]
  - NAUSEA [None]
  - CONTUSION [None]
  - SWELLING [None]
  - HEPATIC CYST [None]
  - RENAL CYST [None]
  - HEAD INJURY [None]
